FAERS Safety Report 15538171 (Version 1)
Quarter: 2018Q4

REPORT INFORMATION
  Report Type: Spontaneous
  Country: SE (occurrence: SE)
  Receive Date: 20181022
  Receipt Date: 20181022
  Transmission Date: 20190205
  Serious: Yes (Other)
  Sender: FDA-Public Use
  Company Number: SE-MYLANLABS-2018M1077398

PATIENT
  Age: 50 Year
  Sex: Female

DRUGS (5)
  1. THACAPZOL [Suspect]
     Active Substance: METHIMAZOLE
     Dosage: 1 DF, INTO 3
     Dates: start: 20180905
  2. TIOTIL [Suspect]
     Active Substance: PROPYLTHIOURACIL
     Indication: PRODUCT USED FOR UNKNOWN INDICATION
     Dosage: UNK
  3. LEVAXIN [Suspect]
     Active Substance: LEVOTHYROXINE SODIUM
     Indication: PRODUCT USED FOR UNKNOWN INDICATION
     Dosage: UNK
  4. THACAPZOL [Suspect]
     Active Substance: METHIMAZOLE
     Indication: BASEDOW^S DISEASE
     Dosage: 3 DF, INTO 2
     Dates: start: 20171124, end: 20171207
  5. PROPICILLIN [Suspect]
     Active Substance: PROPICILLIN
     Indication: PRODUCT USED FOR UNKNOWN INDICATION
     Dosage: UNK

REACTIONS (5)
  - Ulcer haemorrhage [Unknown]
  - Candida infection [Unknown]
  - Faeces discoloured [Unknown]
  - Oesophageal candidiasis [Unknown]
  - Pruritus [Unknown]

NARRATIVE: CASE EVENT DATE: 20181001
